FAERS Safety Report 8782744 (Version 1)
Quarter: 2012Q4

REPORT INFORMATION
  Report Type: 
  Country: US (occurrence: US)
  Receive Date: 20120913
  Receipt Date: 20120913
  Transmission Date: 20130627
  Serious: Yes (Hospitalization)
  Sender: FDA-Public Use
  Company Number: US-GLAXOSMITHKLINE-A0861342A

PATIENT
  Age: 40 Year
  Sex: Female
  Weight: 143.2 kg

DRUGS (1)
  1. ROSIGLITAZONE MALEATE [Suspect]
     Indication: TYPE 2 DIABETES MELLITUS
     Route: 048
     Dates: start: 1995

REACTIONS (6)
  - Cerebrovascular accident [Not Recovered/Not Resolved]
  - Deafness [Unknown]
  - Cardiac failure congestive [Unknown]
  - Hypoaesthesia [Unknown]
  - Amnesia [Unknown]
  - Balance disorder [Unknown]
